FAERS Safety Report 11038309 (Version 1)
Quarter: 2015Q2

REPORT INFORMATION
  Report Type: Spontaneous
  Country: IT (occurrence: IT)
  Receive Date: 20150416
  Receipt Date: 20150416
  Transmission Date: 20150821
  Serious: Yes (Hospitalization)
  Sender: FDA-Public Use
  Company Number: IT-TEVA-554714ACC

PATIENT
  Age: 79 Year

DRUGS (1)
  1. AMOXICILLIN W/CLAVULANIC ACID [Suspect]
     Active Substance: AMOXICILLIN\CLAVULANIC ACID
     Indication: BREAST INFLAMMATION
     Dosage: 2 DOSAGE FORMS DAILY;
     Route: 048
     Dates: start: 20150408, end: 20150408

REACTIONS (2)
  - Dyspnoea [Recovering/Resolving]
  - Neck pain [Recovering/Resolving]

NARRATIVE: CASE EVENT DATE: 20150408
